FAERS Safety Report 9105732 (Version 2)
Quarter: 2013Q1

REPORT INFORMATION
  Report Type: Spontaneous
  Country: US (occurrence: US)
  Receive Date: 20130220
  Receipt Date: 20130306
  Transmission Date: 20140127
  Serious: Yes (Other)
  Sender: FDA-Public Use
  Company Number: US-PFIZER INC-2013061733

PATIENT
  Age: 55 Year
  Sex: Male
  Weight: 122 kg

DRUGS (4)
  1. DILANTIN [Suspect]
     Indication: CONVULSION
     Dosage: 100 MG, 2X/DAY
     Dates: start: 1974
  2. DILANTIN [Suspect]
     Dosage: 30 MG, 2X/DAY
     Dates: start: 1974
  3. TOPAMAX [Suspect]
     Indication: CONVULSION
     Dosage: 325 MG, 2X/DAY
  4. ATIVAN [Concomitant]
     Indication: ANXIETY
     Dosage: 1 MG, UNK

REACTIONS (4)
  - Myocardial infarction [Unknown]
  - Hypokinesia [Unknown]
  - Abnormal behaviour [Unknown]
  - Product colour issue [Unknown]
